FAERS Safety Report 18792683 (Version 3)
Quarter: 2024Q4

REPORT INFORMATION
  Report Type: Spontaneous
  Country: US (occurrence: US)
  Receive Date: 20210127
  Receipt Date: 20241206
  Transmission Date: 20250114
  Serious: No
  Sender: SANOFI AVENTIS
  Company Number: US-SA-SAC20210126000711

PATIENT
  Age: 58 Year
  Sex: Female
  Weight: 47.166 kg

DRUGS (3)
  1. DUPIXENT [Suspect]
     Active Substance: DUPILUMAB
     Indication: Asthma
     Dosage: 300 MG, QOW
     Route: 058
     Dates: start: 201809
  2. DUPIXENT [Suspect]
     Active Substance: DUPILUMAB
     Indication: Dermatitis atopic
  3. DUPIXENT [Suspect]
     Active Substance: DUPILUMAB
     Indication: Eczema

REACTIONS (9)
  - Depressed mood [Unknown]
  - Injection site discharge [Unknown]
  - Skin disorder [Unknown]
  - Dermatitis atopic [Unknown]
  - Scratch [Unknown]
  - Skin haemorrhage [Unknown]
  - Urticaria [Unknown]
  - Scar [Unknown]
  - Product dose omission issue [Unknown]

NARRATIVE: CASE EVENT DATE: 20241105
